FAERS Safety Report 8241277-4 (Version None)
Quarter: 2012Q1

REPORT INFORMATION
  Report Type: 
  Country: None (occurrence: None)
  Receive Date: 20120328
  Receipt Date: 20120322
  Transmission Date: 20120608
  Serious: Yes (Other)
  Sender: FDA-Public Use
  Company Number: JP-PFIZER INC-2012013465

PATIENT
  Age: 74 Year
  Sex: Female

DRUGS (12)
  1. PYDOXAL [Concomitant]
     Dosage: UNK
     Route: 048
  2. LASIX [Concomitant]
     Dosage: UNK
     Route: 048
  3. NAVELBINE [Concomitant]
     Dosage: UNK
     Route: 048
  4. XELODA [Concomitant]
     Dosage: UNK
     Route: 048
  5. LYRICA [Suspect]
     Dosage: 75 MG, 2X/DAY
     Route: 048
     Dates: start: 20110928, end: 20111220
  6. GLIMICRON [Concomitant]
     Dosage: UNK
     Route: 048
  7. BASEN [Concomitant]
     Dosage: UNK
     Route: 048
  8. KYTRIL [Concomitant]
     Dosage: UNK
     Route: 048
  9. DOCETAXEL [Concomitant]
     Indication: BREAST CANCER
     Dosage: UNK
     Route: 048
  10. GOSHAJINKIGAN [Concomitant]
     Dosage: UNK
     Route: 048
  11. LYRICA [Suspect]
     Indication: HYPOAESTHESIA
     Dosage: 75 MG/DAY
     Route: 048
     Dates: start: 20110816, end: 20110927
  12. DEXAMETHASONE SODIUM PHOSPHATE [Concomitant]
     Dosage: UNK
     Route: 048

REACTIONS (3)
  - GENERALISED OEDEMA [None]
  - DRUG INEFFECTIVE [None]
  - DIZZINESS [None]
